FAERS Safety Report 6600577-1 (Version None)
Quarter: 2010Q1

REPORT INFORMATION
  Report Type: 
  Country: None (occurrence: None)
  Receive Date: 20100224
  Receipt Date: 20100218
  Transmission Date: 20100710
  Serious: Yes (Other)
  Sender: FDA-Public Use
  Company Number: US-BAYER-201014506NA

PATIENT
  Age: 72 Year
  Sex: Male

DRUGS (1)
  1. MAGNEVIST [Suspect]
     Indication: AMNESIA
     Dosage: TOTAL DAILY DOSE: 18 ML  UNIT DOSE: 20 ML
     Dates: start: 20100216, end: 20100216

REACTIONS (1)
  - DYSPNOEA [None]
